FAERS Safety Report 9927400 (Version 2)
Quarter: 2014Q1

REPORT INFORMATION
  Report Type: Spontaneous
  Country: JP (occurrence: JP)
  Receive Date: 20140226
  Receipt Date: 20140306
  Transmission Date: 20141002
  Serious: Yes (Hospitalization)
  Sender: FDA-Public Use
  Company Number: PHHY2014JP022635

PATIENT
  Age: 86 Year
  Sex: Female

DRUGS (3)
  1. ZOLEDRONIC ACID [Suspect]
     Indication: PLASMA CELL MYELOMA
     Route: 042
  2. ZOLEDRONIC ACID [Suspect]
     Indication: BONE PAIN
  3. METHYLPREDNISOLONE [Concomitant]
     Indication: PLASMA CELL MYELOMA

REACTIONS (6)
  - Osteonecrosis of jaw [Recovered/Resolved]
  - Swelling [Recovered/Resolved]
  - Abscess jaw [Recovered/Resolved]
  - Bone loss [Recovered/Resolved]
  - Purulent discharge [Recovered/Resolved]
  - Pyrexia [Recovered/Resolved]
